FAERS Safety Report 17272413 (Version 1)
Quarter: 2020Q1

REPORT INFORMATION
  Report Type: Spontaneous
  Country: US (occurrence: US)
  Receive Date: 20191223
  Receipt Date: 20191223
  Transmission Date: 20200409
  Serious: No
  Sender: FDA-Public Use
  Company Number: None

PATIENT
  Age: 68 Year
  Sex: Male
  Weight: 106.14 kg

DRUGS (1)
  1. MEGESTROL (MEGESTROL ACETATE 200MG/5ML SUSP,ORAL [Suspect]
     Active Substance: MEGESTROL
     Indication: DECREASED APPETITE
     Route: 048
     Dates: start: 20191025, end: 20191107

REACTIONS (5)
  - Pulmonary embolism [None]
  - Oedema peripheral [None]
  - Deep vein thrombosis [None]
  - Tachycardia [None]
  - Pain in extremity [None]

NARRATIVE: CASE EVENT DATE: 20191107
